FAERS Safety Report 20928713 (Version 3)
Quarter: 2022Q3

REPORT INFORMATION
  Report Type: Spontaneous
  Country: CA (occurrence: CA)
  Receive Date: 20220607
  Receipt Date: 20220818
  Transmission Date: 20221026
  Serious: Yes (Other)
  Sender: FDA-Public Use
  Company Number: CA-SAMSUNG BIOEPIS-SB-2022-13512

PATIENT
  Age: 61 Year
  Sex: Female
  Weight: 83 kg

DRUGS (2)
  1. INFLIXIMAB [Suspect]
     Active Substance: INFLIXIMAB
     Indication: Psoriatic arthropathy
     Route: 042
  2. METHOTREXATE [Concomitant]
     Active Substance: METHOTREXATE
     Indication: Psoriatic arthropathy
     Route: 065

REACTIONS (8)
  - COVID-19 [Recovered/Resolved]
  - Enthesopathy [Recovered/Resolved]
  - Heart rate decreased [Recovered/Resolved]
  - Hypertension [Recovered/Resolved]
  - Psoriatic arthropathy [Recovered/Resolved]
  - Tenosynovitis [Recovered/Resolved]
  - Weight fluctuation [Recovered/Resolved]
  - Inappropriate schedule of product administration [Recovered/Resolved]
